FAERS Safety Report 16036312 (Version 1)
Quarter: 2019Q1

REPORT INFORMATION
  Report Type: Spontaneous
  Country: US (occurrence: US)
  Receive Date: 20190305
  Receipt Date: 20190305
  Transmission Date: 20190418
  Serious: No
  Sender: FDA-Public Use
  Company Number: US-ALLERGAN-1832647US

PATIENT
  Age: 80 Year
  Sex: Female

DRUGS (3)
  1. ESTRACE [Suspect]
     Active Substance: ESTRADIOL
     Indication: VULVOVAGINAL DRYNESS
     Dosage: 1 APPLICATOR PER DAY OR A LITTLE OVER 3 TIMES PER WEEK
     Route: 067
     Dates: start: 201805
  2. CORTISONE [Concomitant]
     Active Substance: CORTISONE\HYDROCORTISONE
     Indication: ECZEMA
     Dosage: UNK
     Route: 065
  3. ESTRACE [Suspect]
     Active Substance: ESTRADIOL
     Dosage: 1 G, BI-WEEKLY
     Route: 067
     Dates: start: 201805

REACTIONS (1)
  - Incorrect dose administered [Unknown]
